FAERS Safety Report 16325688 (Version 1)
Quarter: 2019Q2

REPORT INFORMATION
  Report Type: Spontaneous
  Country: GB (occurrence: GB)
  Receive Date: 20190517
  Receipt Date: 20190517
  Transmission Date: 20190711
  Serious: Yes (Other)
  Sender: FDA-Public Use
  Company Number: GB-BRISTOL-MYERS SQUIBB COMPANY-BMS-2019-046193

PATIENT
  Age: 66 Year
  Sex: Female
  Weight: 77 kg

DRUGS (2)
  1. TRIAMCINOLONE ACETONIDE. [Suspect]
     Active Substance: TRIAMCINOLONE ACETONIDE
     Indication: PRODUCT USED FOR UNKNOWN INDICATION
     Dosage: 40 UNK
     Route: 030
     Dates: start: 20190227, end: 20190417
  2. CO-DYDRAMOL [Concomitant]
     Active Substance: ACETAMINOPHEN\DIHYDROCODEINE
     Indication: PRODUCT USED FOR UNKNOWN INDICATION
     Dosage: 8 DOSAGE FORM, QD
     Route: 065
     Dates: start: 20180319

REACTIONS (2)
  - Flushing [Recovered/Resolved]
  - Increased steroid activity [Recovered/Resolved]

NARRATIVE: CASE EVENT DATE: 20190227
